FAERS Safety Report 13911334 (Version 3)
Quarter: 2017Q3

REPORT INFORMATION
  Report Type: Report from Study
  Country: BR (occurrence: BR)
  Receive Date: 20170828
  Receipt Date: 20170911
  Transmission Date: 20171127
  Serious: Yes (Hospitalization, Other)
  Sender: FDA-Public Use
  Company Number: BR-JNJFOC-20170823685

PATIENT
  Age: 48 Year
  Sex: Male

DRUGS (2)
  1. REMICADE [Suspect]
     Active Substance: INFLIXIMAB
     Indication: CROHN^S DISEASE
     Route: 042
     Dates: start: 20161129, end: 20161129
  2. REMICADE [Suspect]
     Active Substance: INFLIXIMAB
     Indication: CROHN^S DISEASE
     Route: 042
     Dates: start: 20160701

REACTIONS (3)
  - Renal cancer [Recovered/Resolved]
  - Drug ineffective [Unknown]
  - Crohn^s disease [Unknown]

NARRATIVE: CASE EVENT DATE: 201701
